FAERS Safety Report 25954892 (Version 1)
Quarter: 2025Q4

REPORT INFORMATION
  Report Type: Spontaneous
  Country: US (occurrence: US)
  Receive Date: 20251024
  Receipt Date: 20251024
  Transmission Date: 20260117
  Serious: Yes (Life-Threatening, Hospitalization, Other)
  Sender: UNICHEM
  Company Number: US-UNICHEM LABORATORIES LIMITED-UNI-2025-US-003565

PATIENT

DRUGS (3)
  1. BACLOFEN [Interacting]
     Active Substance: BACLOFEN
     Indication: Back pain
     Dosage: 5 MILLIGRAM, TID
     Route: 065
  2. BACLOFEN [Interacting]
     Active Substance: BACLOFEN
     Dosage: 10 MILLIGRAM
     Route: 065
  3. ADVIL [Interacting]
     Active Substance: IBUPROFEN
     Indication: Headache
     Dosage: UNK , PRN
     Route: 065

REACTIONS (4)
  - Toxic encephalopathy [Recovered/Resolved]
  - Toxicity to various agents [Recovered/Resolved]
  - Drug interaction [Unknown]
  - Vomiting [Recovered/Resolved]
